FAERS Safety Report 5567471-9 (Version None)
Quarter: 2007Q4

REPORT INFORMATION
  Report Type: 
  Country: None (occurrence: None)
  Receive Date: 20071219
  Receipt Date: 20071210
  Transmission Date: 20080405
  Serious: Yes (Death, Hospitalization)
  Sender: FDA-Public Use
  Company Number: TR-MERCK-0712TUR00003

PATIENT
  Age: 37 Year
  Sex: Male

DRUGS (23)
  1. PRIMAXIN [Suspect]
     Indication: FEBRILE NEUTROPENIA
     Route: 065
  2. AMIKACIN [Concomitant]
     Indication: FEBRILE NEUTROPENIA
     Route: 065
  3. METHOTREXATE [Concomitant]
     Indication: MENINGISM
     Route: 065
  4. METHOTREXATE [Concomitant]
     Route: 042
  5. CYTARABINE [Concomitant]
     Indication: MENINGISM
     Route: 065
  6. CYTARABINE [Concomitant]
     Route: 065
  7. CYTARABINE [Concomitant]
     Route: 065
  8. CYTARABINE [Concomitant]
     Route: 065
  9. CYTARABINE [Concomitant]
     Route: 065
  10. CYTARABINE [Concomitant]
     Route: 065
  11. CYTARABINE [Concomitant]
     Route: 042
  12. DEXAMETHASONE [Concomitant]
     Indication: MENINGISM
     Route: 065
  13. DEXAMETHASONE [Concomitant]
     Route: 065
  14. DEXAMETHASONE [Concomitant]
     Route: 065
  15. DEXAMETHASONE [Concomitant]
     Route: 065
  16. DEXAMETHASONE [Concomitant]
     Route: 065
  17. DEXAMETHASONE [Concomitant]
     Route: 065
  18. ACYCLOVIR [Concomitant]
     Indication: ORAL CANDIDIASIS
     Route: 065
  19. ACYCLOVIR [Concomitant]
     Indication: HERPES ZOSTER
     Route: 065
  20. FLUCONAZOLE [Concomitant]
     Indication: ORAL CANDIDIASIS
     Route: 065
  21. FLUCONAZOLE [Concomitant]
     Indication: HERPES ZOSTER
     Route: 065
  22. FILGRASTIM [Concomitant]
     Indication: FEBRILE NEUTROPENIA
     Route: 065
  23. FOLINIC ACID [Concomitant]
     Indication: MENINGISM
     Route: 065

REACTIONS (4)
  - DEATH [None]
  - DIARRHOEA [None]
  - DRUG INEFFECTIVE [None]
  - MUCOSAL INFLAMMATION [None]
